FAERS Safety Report 24392433 (Version 1)
Quarter: 2024Q4

REPORT INFORMATION
  Report Type: Spontaneous
  Country: US (occurrence: US)
  Receive Date: 20241003
  Receipt Date: 20241003
  Transmission Date: 20250114
  Serious: No
  Sender: Sentiss Pharma
  Company Number: US-SENTISSAG-2024SAGSPO-00019

PATIENT
  Age: 69 Year
  Sex: Female
  Weight: 107 kg

DRUGS (3)
  1. ERYTHROMYCIN [Suspect]
     Active Substance: ERYTHROMYCIN
     Indication: Eyelid disorder
     Route: 047
     Dates: start: 202406, end: 202406
  2. ERYTHROMYCIN [Suspect]
     Active Substance: ERYTHROMYCIN
     Route: 047
     Dates: start: 20240815, end: 20240817
  3. ERYTHROMYCIN [Suspect]
     Active Substance: ERYTHROMYCIN
     Route: 047
     Dates: start: 20240916, end: 20240917

REACTIONS (2)
  - Swelling of eyelid [Recovering/Resolving]
  - Swelling face [Recovering/Resolving]

NARRATIVE: CASE EVENT DATE: 20240815
